FAERS Safety Report 13327859 (Version 1)
Quarter: 2017Q1

REPORT INFORMATION
  Report Type: Spontaneous
  Country: US (occurrence: US)
  Receive Date: 20170313
  Receipt Date: 20170313
  Transmission Date: 20170428
  Serious: No
  Sender: FDA-Public Use
  Company Number: US-JNJFOC-20170125678

PATIENT
  Age: 69 Year
  Sex: Female
  Weight: 55.34 kg

DRUGS (3)
  1. NIZORAL [Concomitant]
     Active Substance: KETOCONAZOLE
     Indication: DRY SKIN
     Route: 065
  2. WOMENS ROGAINE UNSCENTED [Suspect]
     Active Substance: MINOXIDIL
     Route: 061
  3. WOMENS ROGAINE UNSCENTED [Suspect]
     Active Substance: MINOXIDIL
     Indication: ALOPECIA
     Dosage: 1/2 CAPFUL
     Route: 061
     Dates: start: 20160801, end: 20170120

REACTIONS (1)
  - Rosacea [Unknown]
